FAERS Safety Report 5918938-2 (Version None)
Quarter: 2008Q4

REPORT INFORMATION
  Report Type: 
  Country: None (occurrence: None)
  Receive Date: 20081010
  Receipt Date: 20080925
  Transmission Date: 20090506
  Serious: Yes (Life-Threatening)
  Sender: FDA-Public Use
  Company Number: 08H-056-0315018-00

PATIENT
  Age: 60 Year
  Sex: Male

DRUGS (7)
  1. ONDANSETRON INJECTION 2 MG/ML PRESERVATIVE FREE (ONDANSETRON) [Suspect]
     Indication: DRUG USE FOR UNKNOWN INDICATION
     Dosage: 2 MILLIGRAM/MILLILITERS, INTRAVENOUS (NOT OTHERWISE SPECIFIED)
     Dates: start: 20080627, end: 20080627
  2. VINCRISTINE [Suspect]
     Indication: CENTRAL NERVOUS SYSTEM LYMPHOMA
     Dosage: INTRAVENOUS (NOT OTHERWISE PSECIFIED)
     Dates: start: 20080627, end: 20080627
  3. DOXORUBICIN HCL [Suspect]
     Indication: CENTRAL NERVOUS SYSTEM LYMPHOMA
     Dosage: CYCLICAL, INTRAVENOUS (NOT REPORTED)
     Dates: start: 20080627, end: 20080627
  4. CYCLOPHOSPHAMIDE (CYCLOPHSOPHAMIDE) [Suspect]
     Indication: CENTRAL NERVOUS SYSTEM LYMPHOMA
     Dosage: CYCLICAL, INTRAVENOUS (NOT REPORTED)
     Route: 042
     Dates: start: 20080627, end: 20080627
  5. PREDNISONE [Suspect]
     Indication: DRUG USE FOR UNKNOWN INDICATION
     Dosage: 80 MG, 1 IN 1 D, ORAL
     Route: 048
     Dates: start: 20080627, end: 20080701
  6. MESNA [Suspect]
     Indication: CENTRAL NERVOUS SYSTEM LYMPHOMA
     Dosage: 1000 MG, 2 IN 1 D, ORAL; 500 MG, INTRAVENOUS (NOT OTHERWISE SPECIFIED)
     Route: 048
     Dates: start: 20080627, end: 20080627
  7. MESNA [Suspect]
     Indication: CENTRAL NERVOUS SYSTEM LYMPHOMA
     Dosage: 1000 MG, 2 IN 1 D, ORAL; 500 MG, INTRAVENOUS (NOT OTHERWISE SPECIFIED)
     Route: 048
     Dates: start: 20080627, end: 20080627

REACTIONS (4)
  - CARDIAC TAMPONADE [None]
  - HEPATIC FUNCTION ABNORMAL [None]
  - PERICARDIAL EFFUSION [None]
  - RENAL IMPAIRMENT [None]
